FAERS Safety Report 24623727 (Version 1)
Quarter: 2024Q4

REPORT INFORMATION
  Report Type: Spontaneous
  Country: EG (occurrence: EG)
  Receive Date: 20241115
  Receipt Date: 20241115
  Transmission Date: 20250115
  Serious: Yes (Other)
  Sender: ROCHE
  Company Number: EG-ROCHE-10000131447

PATIENT
  Age: 39 Year
  Sex: Female
  Weight: 82 kg

DRUGS (5)
  1. PHESGO [Suspect]
     Active Substance: HYALURONIDASE-ZZXF\PERTUZUMAB\TRASTUZUMAB
     Indication: Breast cancer
     Route: 042
  2. PHESGO [Suspect]
     Active Substance: HYALURONIDASE-ZZXF\PERTUZUMAB\TRASTUZUMAB
     Dosage: CYCLE 2
     Route: 042
     Dates: start: 20240909
  3. PHESGO [Suspect]
     Active Substance: HYALURONIDASE-ZZXF\PERTUZUMAB\TRASTUZUMAB
     Dosage: CYCLE 4 DAY 1.
     Route: 042
     Dates: start: 20240930
  4. Intaxel [Concomitant]
     Dosage: DAY 1,8,15
     Route: 042
  5. CARBOPLATIN [Concomitant]
     Active Substance: CARBOPLATIN
     Route: 042

REACTIONS (2)
  - Nausea [Not Recovered/Not Resolved]
  - Pancytopenia [Recovered/Resolved]

NARRATIVE: CASE EVENT DATE: 20241002
